FAERS Safety Report 5910774-6 (Version None)
Quarter: 2008Q4

REPORT INFORMATION
  Report Type: 
  Country: None (occurrence: None)
  Receive Date: 20081007
  Receipt Date: 20080429
  Transmission Date: 20090506
  Serious: No
  Sender: FDA-Public Use
  Company Number: US-ASTRAZENECA-2008UW08676

PATIENT
  Age: 71 Year
  Sex: Female
  Weight: 71.7 kg

DRUGS (5)
  1. ARIMIDEX [Suspect]
     Indication: BREAST CANCER
     Route: 048
     Dates: start: 20060101, end: 20070101
  2. ARIMIDEX [Suspect]
     Route: 048
     Dates: start: 20080201
  3. TOPROL(GENERIC) [Concomitant]
  4. ZOCOR [Concomitant]
  5. ALEDRONATE [Concomitant]

REACTIONS (2)
  - ARTHRALGIA [None]
  - DYSPEPSIA [None]
